FAERS Safety Report 8621918-X (Version None)
Quarter: 2012Q3

REPORT INFORMATION
  Report Type: 
  Country: None (occurrence: None)
  Receive Date: 20120822
  Receipt Date: 20120822
  Transmission Date: 20120928
  Serious: No
  Sender: FDA-Public Use
  Company Number: None

PATIENT
  Age: 58 Year
  Sex: Female
  Weight: 89.8122 kg

DRUGS (1)
  1. CARVEDILOL [Suspect]
     Indication: BLOOD PRESSURE
     Dates: start: 20120818, end: 20120819

REACTIONS (4)
  - EYE IRRITATION [None]
  - FEELING ABNORMAL [None]
  - MYDRIASIS [None]
  - NERVOUSNESS [None]
